FAERS Safety Report 13671959 (Version 2)
Quarter: 2017Q2

REPORT INFORMATION
  Report Type: Report from Study
  Country: SK (occurrence: SK)
  Receive Date: 20170621
  Receipt Date: 20170623
  Transmission Date: 20170830
  Serious: Yes (Death)
  Sender: FDA-Public Use
  Company Number: SK-PFIZER INC-2017264747

PATIENT
  Age: 59 Year
  Sex: Male
  Weight: 172 kg

DRUGS (24)
  1. HYDROCORTISONE. [Concomitant]
     Active Substance: HYDROCORTISONE
     Indication: ADRENOCORTICOTROPIC HORMONE DEFICIENCY
     Route: 048
  2. LANREOTIDE [Concomitant]
     Active Substance: LANREOTIDE
     Indication: ACROMEGALY
     Route: 030
  3. CONCOR [Concomitant]
     Active Substance: BISOPROLOL FUMARATE
  4. CEFOTAXIME [Concomitant]
     Active Substance: CEFOTAXIME SODIUM
  5. FURORESE /00032602/ [Concomitant]
  6. EBRANTIL /00631801/ [Concomitant]
     Active Substance: URAPIDIL
  7. MIRZATEN [Concomitant]
     Active Substance: MIRTAZAPINE
  8. TESTOSTERONE. [Concomitant]
     Active Substance: TESTOSTERONE
     Indication: BLOOD LUTEINISING HORMONE DECREASED
     Route: 030
  9. SURAL [Concomitant]
  10. BENEMYCIN /00047701/ [Concomitant]
  11. TESTOSTERONE. [Concomitant]
     Active Substance: TESTOSTERONE
     Indication: BLOOD FOLLICLE STIMULATING HORMONE DECREASED
  12. OZZION [Concomitant]
  13. SYNTOPHYLLIN /00003701/ [Concomitant]
  14. LUCETAM [Concomitant]
  15. LEVOTHYROXIN [Concomitant]
     Active Substance: LEVOTHYROXINE
     Indication: BLOOD THYROID STIMULATING HORMONE DECREASED
     Route: 048
  16. VIGANTOL /00318501/ [Concomitant]
     Active Substance: CHOLECALCIFEROL
  17. PEGVISOMANT [Suspect]
     Active Substance: PEGVISOMANT
     Indication: ACROMEGALY
     Dosage: 15 MG, 2 TIMES WEEKLY
     Route: 058
     Dates: start: 20070510, end: 20170523
  18. FRAXIPARINE [Concomitant]
     Active Substance: NADROPARIN CALCIUM
  19. HALOPERIDOL. [Concomitant]
     Active Substance: HALOPERIDOL
  20. NIDRAZID [Concomitant]
     Active Substance: ISONIAZID
  21. AGEN [Concomitant]
  22. ALFUZOSIN [Concomitant]
     Active Substance: ALFUZOSIN
  23. ASOLFENA [Concomitant]
  24. CIPHIN /00697202/ [Concomitant]

REACTIONS (1)
  - Pneumonia [Fatal]

NARRATIVE: CASE EVENT DATE: 20170524
